FAERS Safety Report 12594895 (Version 2)
Quarter: 2017Q1

REPORT INFORMATION
  Report Type: Spontaneous
  Country: US (occurrence: US)
  Receive Date: 20160726
  Receipt Date: 20170330
  Transmission Date: 20170428
  Serious: Yes (Hospitalization, Other)
  Sender: FDA-Public Use
  Company Number: US-PFIZER INC-2016358490

PATIENT
  Age: 48 Year
  Sex: Male

DRUGS (3)
  1. ANDROGEL [Suspect]
     Active Substance: TESTOSTERONE
     Indication: HORMONE REPLACEMENT THERAPY
     Dosage: UNK, 1X/DAY
     Dates: start: 1985, end: 2012
  2. DEPO-TESTOSTERONE [Suspect]
     Active Substance: TESTOSTERONE CYPIONATE
     Indication: HORMONE REPLACEMENT THERAPY
     Dosage: UNK, WEEKLY (ONE CC)
     Dates: start: 1980, end: 2009
  3. ANDRODERM [Suspect]
     Active Substance: TESTOSTERONE
     Indication: HORMONE REPLACEMENT THERAPY
     Dosage: UNK
     Dates: start: 1985, end: 2012

REACTIONS (13)
  - Cardiac failure [Unknown]
  - Carotid arterial embolus [Unknown]
  - Walking aid user [Unknown]
  - Pain [Not Recovered/Not Resolved]
  - Myocardial infarction [Unknown]
  - Muscular weakness [Unknown]
  - Gait disturbance [Unknown]
  - Deep vein thrombosis [Unknown]
  - Memory impairment [Unknown]
  - Cerebrovascular accident [Unknown]
  - Skin ulcer [Unknown]
  - Speech disorder [Unknown]
  - Wheelchair user [Unknown]

NARRATIVE: CASE EVENT DATE: 2000
